FAERS Safety Report 24699351 (Version 1)
Quarter: 2024Q4

REPORT INFORMATION
  Report Type: Report from Study
  Country: CA (occurrence: CA)
  Receive Date: 20241205
  Receipt Date: 20241205
  Transmission Date: 20250115
  Serious: Yes (Other)
  Sender: ABBVIE
  Company Number: CA-ABBVIE-6030765

PATIENT
  Age: 76 Year
  Sex: Female

DRUGS (1)
  1. RINVOQ [Suspect]
     Active Substance: UPADACITINIB
     Indication: Crohn^s disease
     Route: 048
     Dates: start: 20241113

REACTIONS (5)
  - Stoma creation [Unknown]
  - Product residue present [Unknown]
  - Headache [Recovered/Resolved]
  - Nausea [Unknown]
  - Acne [Unknown]

NARRATIVE: CASE EVENT DATE: 20240101
